FAERS Safety Report 14288001 (Version 1)
Quarter: 2017Q4

REPORT INFORMATION
  Report Type: Spontaneous
  Country: US (occurrence: US)
  Receive Date: 20171214
  Receipt Date: 20171214
  Transmission Date: 20180321
  Serious: No
  Sender: FDA-Public Use
  Company Number: US-PERRIGO-17US028018

PATIENT
  Age: 78 Year
  Sex: Female
  Weight: 83.45 kg

DRUGS (2)
  1. PREDNISONE                         /00044702/ [Concomitant]
     Active Substance: PREDNISONE
     Indication: CORNEAL DISORDER
     Dosage: UNKNOWN, UNKNOWN
     Route: 047
  2. BACITRACIN. [Suspect]
     Active Substance: BACITRACIN
     Indication: CONJUNCTIVITIS
     Dosage: ONE APPLICATION TO RIGHT EYE, BID
     Route: 047
     Dates: start: 20171022, end: 20171025

REACTIONS (2)
  - Dizziness [Recovered/Resolved]
  - Nausea [Recovered/Resolved]

NARRATIVE: CASE EVENT DATE: 20171023
